FAERS Safety Report 16179056 (Version 1)
Quarter: 2019Q2

REPORT INFORMATION
  Report Type: Spontaneous
  Country: US (occurrence: US)
  Receive Date: 20190307
  Receipt Date: 20190307
  Transmission Date: 20190711
  Serious: Yes (Hospitalization)
  Sender: FDA-Public Use
  Company Number: None

PATIENT
  Sex: Male

DRUGS (1)
  1. TOBRAMYCIN 500MG [Suspect]
     Active Substance: TOBRAMYCIN
     Indication: BRONCHIECTASIS
     Route: 055
     Dates: start: 20180821

REACTIONS (4)
  - Asthenia [None]
  - Product dose omission [None]
  - Staphylococcal infection [None]
  - Lung disorder [None]
